FAERS Safety Report 20430245 (Version 1)
Quarter: 2022Q1

REPORT INFORMATION
  Report Type: Report from Study
  Country: FR (occurrence: FR)
  Receive Date: 20220204
  Receipt Date: 20220204
  Transmission Date: 20220423
  Serious: Yes (Hospitalization)
  Sender: FDA-Public Use
  Company Number: FR-SERVIER-S20004537

PATIENT

DRUGS (7)
  1. PEGASPARGASE [Suspect]
     Active Substance: PEGASPARGASE
     Indication: Acute lymphocytic leukaemia
     Dosage: 1725 IU  D4
     Dates: start: 20190829
  2. VINCRISTINE SULFATE [Suspect]
     Active Substance: VINCRISTINE SULFATE
     Indication: Acute lymphocytic leukaemia
     Dosage: 0.9 MG, ON D1, D8, D15
     Route: 042
     Dates: start: 20190826
  3. DOXORUBICIN HYDROCHLORIDE [Suspect]
     Active Substance: DOXORUBICIN HYDROCHLORIDE
     Indication: Acute lymphocytic leukaemia
     Dosage: 16.9 MG, ON D1, D8, D15
     Route: 042
     Dates: start: 20190826
  4. CYTARABINE [Suspect]
     Active Substance: CYTARABINE
     Indication: Acute lymphocytic leukaemia
     Dosage: 50 MG, ON D31, D32
     Route: 042
     Dates: start: 20191007
  5. CYTARABINE [Suspect]
     Active Substance: CYTARABINE
     Dosage: 12 MG, ON D4, D31
     Route: 037
     Dates: start: 20190829, end: 20191007
  6. HYDROCORTISONE HEMISUCCINATE ANHYDROUS [Suspect]
     Active Substance: HYDROCORTISONE HEMISUCCINATE ANHYDROUS
     Indication: Acute lymphocytic leukaemia
     Dosage: 30 MG, ON D4, D31
     Route: 037
     Dates: start: 20190829, end: 20191007
  7. METHOTREXATE SODIUM [Suspect]
     Active Substance: METHOTREXATE SODIUM
     Indication: Acute lymphocytic leukaemia
     Dosage: 12 MG, ON D4, D31
     Route: 037
     Dates: start: 20190829, end: 20191007

REACTIONS (1)
  - Staphylococcal sepsis [Recovered/Resolved]

NARRATIVE: CASE EVENT DATE: 20191008
